FAERS Safety Report 8540140-9 (Version None)
Quarter: 2012Q3

REPORT INFORMATION
  Report Type: 
  Country: None (occurrence: None)
  Receive Date: 20120726
  Receipt Date: 20120718
  Transmission Date: 20120928
  Serious: Yes (Other)
  Sender: FDA-Public Use
  Company Number: GB-UCBSA-062204

PATIENT

DRUGS (3)
  1. HUMIRA [Concomitant]
  2. CIMZIA [Suspect]
  3. ENBREL [Concomitant]

REACTIONS (2)
  - CARDIOMEGALY [None]
  - ADVERSE DRUG REACTION [None]
